FAERS Safety Report 25962424 (Version 2)
Quarter: 2025Q4

REPORT INFORMATION
  Report Type: Spontaneous
  Country: EU (occurrence: EU)
  Receive Date: 20251027
  Receipt Date: 20251104
  Transmission Date: 20260117
  Serious: Yes (Other)
  Sender: BRISTOL-MYERS SQUIBB COMPANY
  Company Number: EU-002147023-NVSC2024CZ229413

PATIENT
  Age: 75 Year
  Sex: Male

DRUGS (4)
  1. DASATINIB [Suspect]
     Active Substance: DASATINIB
     Indication: Philadelphia positive chronic myeloid leukaemia
     Dosage: 90 MG/DAY (SECOND LINE TREATMENT)
  2. DASATINIB [Suspect]
     Active Substance: DASATINIB
     Dosage: 70 MG/DAY (SECOND LINE TREATMENT)
  3. DASATINIB [Suspect]
     Active Substance: DASATINIB
     Dosage: 70 MG 5 TIMES WEEKLY (SECOND LINE TREATMENT)
  4. HYDROXYUREA [Concomitant]
     Active Substance: HYDROXYUREA
     Indication: Cytoreductive surgery

REACTIONS (3)
  - Neurotoxicity [Unknown]
  - Skin toxicity [Not Recovered/Not Resolved]
  - Headache [Unknown]
